FAERS Safety Report 4738489-0 (Version None)
Quarter: 2005Q3

REPORT INFORMATION
  Report Type: 
  Country: None (occurrence: None)
  Receive Date: 20050809
  Receipt Date: 20050126
  Transmission Date: 20060218
  Serious: Yes (Hospitalization)
  Sender: FDA-Public Use
  Company Number: JP-BRISTOL-MYERS SQUIBB COMPANY-12860102

PATIENT
  Age: 66 Year
  Sex: Male

DRUGS (2)
  1. IFOMIDE [Suspect]
     Indication: MALIGNANT FIBROUS HISTIOCYTOMA
     Route: 041
     Dates: start: 19961118, end: 19961121
  2. VEPESID [Suspect]
     Indication: MALIGNANT FIBROUS HISTIOCYTOMA
     Route: 041
     Dates: start: 19961118, end: 19961121

REACTIONS (2)
  - ENCEPHALOPATHY [None]
  - METABOLIC ACIDOSIS [None]
